FAERS Safety Report 16989754 (Version 2)
Quarter: 2019Q4

REPORT INFORMATION
  Report Type: Report from Study
  Country: CA (occurrence: CA)
  Receive Date: 20191104
  Receipt Date: 20191223
  Transmission Date: 20200122
  Serious: Yes (Other)
  Sender: FDA-Public Use
  Company Number: CA-JNJFOC-20191047876

PATIENT
  Age: 51 Year
  Sex: Female
  Weight: 86.1 kg

DRUGS (1)
  1. REMICADE [Suspect]
     Active Substance: INFLIXIMAB
     Indication: COLITIS ULCERATIVE
     Dosage: STRENGTH = 100 MG
     Route: 042
     Dates: start: 20180404

REACTIONS (5)
  - Asthma [Not Recovered/Not Resolved]
  - Fall [Recovering/Resolving]
  - Hypertension [Not Recovered/Not Resolved]
  - Loss of consciousness [Recovering/Resolving]
  - Face injury [Recovering/Resolving]

NARRATIVE: CASE EVENT DATE: 20191028
